FAERS Safety Report 4315704-9 (Version None)
Quarter: 2004Q1

REPORT INFORMATION
  Report Type: 
  Country: None (occurrence: None)
  Receive Date: 20040309
  Receipt Date: 20040219
  Transmission Date: 20041129
  Serious: Yes (Hospitalization)
  Sender: FDA-Public Use
  Company Number: US-SHR-04-021633

PATIENT
  Age: 54 Year
  Sex: Female

DRUGS (13)
  1. CAMPATH [Suspect]
     Indication: ALLOGENIC BONE MARROW TRANSPLANTATION THERAPY
     Dosage: 10MG/D, D-7 TO -3
     Dates: start: 20030101, end: 20030101
  2. FLUDARA [Suspect]
     Indication: ALLOGENIC BONE MARROW TRANSPLANTATION THERAPY
     Dosage: 25 MG/M2X5D,D-5TO ,
     Dates: start: 20030101, end: 20030101
  3. CYCLOPHOSPHAMIDE [Suspect]
     Indication: ALLOGENIC BONE MARROW TRANSPLANTATION THERAPY
     Dosage: 45 MG/KG/DX2D,D-4AND-3,
     Dates: start: 20030101, end: 20030101
  4. CYCLOSPORINE [Suspect]
     Dosage: 100 MG, 2X/DAY, LIQUID, ORAL
     Route: 048
     Dates: start: 20030101
  5. GM-CSF (SARGRAMOSTIM) INJECTION [Suspect]
     Indication: ALLOGENIC BONE MARROW TRANSPLANTATION THERAPY
     Dosage: 250 MCG/DAY BEGINNING D+3, SUBCUTANEOUS
     Route: 058
     Dates: start: 20030101
  6. TYLENOL (CAPLET) [Concomitant]
  7. LOVENOX [Concomitant]
  8. ACYCLOVIR [Concomitant]
  9. FOLIC ACID [Concomitant]
  10. MULTIPLE VITAMINS (RETINOL) [Concomitant]
  11. MAGNESIUM (MAGNESIUM) [Concomitant]
  12. ATIVAN [Concomitant]
  13. PENTAMIDINE (PENTAMIDINE) [Concomitant]

REACTIONS (17)
  - ARTHRALGIA [None]
  - BLOOD MAGNESIUM DECREASED [None]
  - BONE PAIN [None]
  - CATHETER RELATED INFECTION [None]
  - COMPLICATED MIGRAINE [None]
  - COUGH [None]
  - DEEP VEIN THROMBOSIS [None]
  - DYSARTHRIA [None]
  - EOSINOPHILIA [None]
  - GRAFT VERSUS HOST DISEASE [None]
  - NAUSEA [None]
  - PANCYTOPENIA [None]
  - POST PROCEDURAL COMPLICATION [None]
  - RASH PRURITIC [None]
  - TREMOR [None]
  - VISUAL DISTURBANCE [None]
  - WHITE BLOOD CELL COUNT DECREASED [None]
